FAERS Safety Report 21272002 (Version 1)
Quarter: 2022Q3

REPORT INFORMATION
  Report Type: Spontaneous
  Country: US (occurrence: US)
  Receive Date: 20220830
  Receipt Date: 20220830
  Transmission Date: 20221027
  Serious: Yes (Other)
  Sender: FDA-Public Use
  Company Number: US-AMERICAN REGENT INC-2022000656

PATIENT
  Sex: Female
  Weight: 96.4 kg

DRUGS (8)
  1. INJECTAFER [Suspect]
     Active Substance: FERRIC CARBOXYMALTOSE
     Indication: Iron deficiency anaemia
     Dosage: 750 MILLIGRAM IN NS 115 ML
     Route: 042
     Dates: start: 20180215, end: 20180215
  2. INJECTAFER [Suspect]
     Active Substance: FERRIC CARBOXYMALTOSE
     Indication: Fatigue
     Dosage: 750 MILLIGRAM IN NS 115 ML
     Route: 042
     Dates: start: 20180222, end: 20180222
  3. INJECTAFER [Suspect]
     Active Substance: FERRIC CARBOXYMALTOSE
     Indication: Gastric bypass
  4. ROBAXIN [Concomitant]
     Active Substance: METHOCARBAMOL
     Indication: Muscle spasms
     Dosage: TAKE 1 TABLET (750 MILLIGRAM TOTAL) 3 TIMES A DAY AS NEEDED
     Route: 048
  5. PROTONIX [Concomitant]
     Active Substance: PANTOPRAZOLE SODIUM
     Indication: Product used for unknown indication
     Dosage: TAKE 2 TABLETS (40 MILLIGRAM TOTAL) DAILY
     Route: 048
  6. LYRICA [Concomitant]
     Active Substance: PREGABALIN
     Indication: Product used for unknown indication
     Dosage: TAKE 150 MILLIGRAM TWO TIMES A DAY
     Route: 048
  7. CARAFATE [Concomitant]
     Active Substance: SUCRALFATE
     Indication: Product used for unknown indication
     Dosage: TAKE 10 ML (1 GRAM TOTAL) 4 TIMES A DAY WITH MEALS AND AT BEDTIME
     Route: 048
  8. PERCOCET [Concomitant]
     Active Substance: ACETAMINOPHEN\OXYCODONE HYDROCHLORIDE
     Indication: Pain
     Dosage: TAKE 1 TABLET EVERY 6 HOURS AS NEEDED
     Route: 048

REACTIONS (1)
  - Hypophosphataemia [Unknown]
